FAERS Safety Report 24390816 (Version 9)
Quarter: 2025Q1

REPORT INFORMATION
  Report Type: Report from Study
  Country: IE (occurrence: IE)
  Receive Date: 20241003
  Receipt Date: 20250319
  Transmission Date: 20250408
  Serious: Yes (Hospitalization, Other)
  Sender: SANOFI AVENTIS
  Company Number: IE-SA-2024SA283154

PATIENT
  Age: 56 Year
  Sex: Female
  Weight: 116.5 kg

DRUGS (10)
  1. OXALIPLATIN [Suspect]
     Active Substance: OXALIPLATIN
     Indication: Colon cancer
     Dosage: 150 MG, QOW
     Route: 042
     Dates: start: 20240802, end: 20240819
  2. TUCATINIB [Suspect]
     Active Substance: TUCATINIB
     Indication: Colorectal cancer metastatic
     Dosage: 250 MG, BID
     Route: 048
     Dates: start: 20240726, end: 20240819
  3. TRASTUZUMAB [Suspect]
     Active Substance: TRASTUZUMAB
     Indication: Colon cancer
     Dosage: 994 MG, Q3W
     Route: 042
     Dates: start: 20240726, end: 20240819
  4. FLUOROURACIL [Suspect]
     Active Substance: FLUOROURACIL
     Indication: Colon cancer
     Dosage: 4200 MG,2384.84 MG/M2; QOW
     Route: 040
     Dates: start: 20240802, end: 20240819
  5. FLUOROURACIL [Suspect]
     Active Substance: FLUOROURACIL
     Dosage: 738 MG, QOW
     Route: 040
     Dates: start: 20240802, end: 20240819
  6. LEUCOVORIN [Suspect]
     Active Substance: LEUCOVORIN\LEUCOVORIN CALCIUM
     Indication: Colon cancer
     Dosage: 922 MG, QOW
     Route: 042
     Dates: start: 20240802, end: 20240819
  7. LOPERAMIDE [Suspect]
     Active Substance: LOPERAMIDE
     Indication: Colon cancer
     Dosage: 4 MG, QID (4X/DAY)
     Route: 048
     Dates: start: 20240707, end: 20241014
  8. LOPERAMIDE [Suspect]
     Active Substance: LOPERAMIDE
     Indication: Diarrhoea
  9. LOSARTAN [Concomitant]
     Active Substance: LOSARTAN
     Indication: Hypertension
     Route: 048
     Dates: start: 20240817, end: 20240917
  10. METFORMIN [Concomitant]
     Active Substance: METFORMIN HYDROCHLORIDE
     Indication: Type 2 diabetes mellitus
     Dates: start: 20240817, end: 20240917

REACTIONS (5)
  - Confusional state [Recovered/Resolved]
  - Hypovolaemia [Recovered/Resolved]
  - Hyponatraemia [Recovered/Resolved]
  - Acute kidney injury [Recovered/Resolved]
  - Blood creatinine increased [Recovered/Resolved]

NARRATIVE: CASE EVENT DATE: 20240916
